FAERS Safety Report 19265880 (Version 1)
Quarter: 2021Q2

REPORT INFORMATION
  Report Type: Report from Study
  Country: US (occurrence: US)
  Receive Date: 20210517
  Receipt Date: 20210517
  Transmission Date: 20210717
  Serious: Yes (Other)
  Sender: FDA-Public Use
  Company Number: US-PFIZER INC-2021386231

PATIENT
  Age: 85 Year
  Sex: Male

DRUGS (1)
  1. SUTENT [Suspect]
     Active Substance: SUNITINIB MALATE
     Indication: RENAL CELL CARCINOMA
     Dosage: 37.5 MG, CYCLIC ( DAILY, 4 WEEKS ON AND 2 WEEKS OFF)
     Route: 048
     Dates: start: 20210331, end: 20210421

REACTIONS (6)
  - Neuropathy peripheral [Unknown]
  - Product dose omission issue [Unknown]
  - Gait disturbance [Unknown]
  - Choking sensation [Recovering/Resolving]
  - Stomatitis [Unknown]
  - Mucosal inflammation [Unknown]

NARRATIVE: CASE EVENT DATE: 202103
